FAERS Safety Report 4880853-3 (Version None)
Quarter: 2005Q4

REPORT INFORMATION
  Report Type: 
  Country: None (occurrence: None)
  Receive Date: 20051223
  Receipt Date: 20051031
  Transmission Date: 20060501
  Serious: No
  Sender: FDA-Public Use
  Company Number: 05P-163-0316002-00

PATIENT
  Age: 58 Year
  Sex: Female
  Weight: 44.4525 kg

DRUGS (11)
  1. HUMIRA [Suspect]
     Indication: RHEUMATOID ARTHRITIS
     Dosage: 40 MG, 1 IN 2 WK, SUBCUTANEOUS
     Route: 058
     Dates: start: 20050928
  2. FERROUS SULFATE TAB [Concomitant]
  3. OXYBUTYNIN [Concomitant]
  4. LEVOTHYROXINE SODIUM [Concomitant]
  5. OXYCOCET [Concomitant]
  6. MULTIVITAMIN [Concomitant]
  7. FOLIC ACID [Concomitant]
  8. TOCOPHEROL CONCENTRATE CAP [Concomitant]
  9. ASCORBIC ACID [Concomitant]
  10. LEKOVIT CA [Concomitant]
  11. ASPIRIN [Concomitant]

REACTIONS (6)
  - DRUG INEFFECTIVE [None]
  - EPISTAXIS [None]
  - FALL [None]
  - GANGLION [None]
  - INJECTION SITE IRRITATION [None]
  - INSOMNIA [None]
